FAERS Safety Report 18119678 (Version 1)
Quarter: 2020Q3

REPORT INFORMATION
  Report Type: Other
  Country: JP (occurrence: JP)
  Receive Date: 20200806
  Receipt Date: 20200806
  Transmission Date: 20201103
  Serious: Yes (Life-Threatening, Hospitalization)
  Sender: FDA-Public Use
  Company Number: JP-EMD SERONO-9177982

PATIENT
  Age: 18 Year
  Sex: Female

DRUGS (5)
  1. METFORMIN [Suspect]
     Active Substance: METFORMIN HYDROCHLORIDE
     Indication: SUICIDE ATTEMPT
     Dosage: 16,000 MG IN TOTAL
  2. ATORVASTATIN [Suspect]
     Active Substance: ATORVASTATIN
     Indication: SUICIDE ATTEMPT
  3. DAPAGLIFLOZIN. [Suspect]
     Active Substance: DAPAGLIFLOZIN
     Indication: SUICIDE ATTEMPT
  4. GLIMEPIRIDE. [Suspect]
     Active Substance: GLIMEPIRIDE
     Indication: SUICIDE ATTEMPT
  5. VILDAGLIPTIN [Suspect]
     Active Substance: VILDAGLIPTIN
     Indication: SUICIDE ATTEMPT
     Dosage: 1300 MG IN TOTAL

REACTIONS (12)
  - Shock [Recovered/Resolved]
  - Rhabdomyolysis [Unknown]
  - Capillary leak syndrome [Recovered/Resolved]
  - Loss of consciousness [Recovered/Resolved]
  - Lactic acidosis [Unknown]
  - Acute kidney injury [Unknown]
  - Pneumonia aspiration [Unknown]
  - Hypoglycaemia [Recovered/Resolved]
  - Compartment syndrome [Recovered/Resolved]
  - Disseminated intravascular coagulation [Recovered/Resolved]
  - Intentional overdose [Unknown]
  - Hypovolaemia [Recovered/Resolved]
